FAERS Safety Report 18563477 (Version 5)
Quarter: 2021Q2

REPORT INFORMATION
  Report Type: Report from Study
  Country: US (occurrence: US)
  Receive Date: 20201201
  Receipt Date: 20210407
  Transmission Date: 20210717
  Serious: Yes (Other)
  Sender: FDA-Public Use
  Company Number: NVSC2020US313563

PATIENT
  Sex: Female

DRUGS (4)
  1. BEOVU [Suspect]
     Active Substance: BROLUCIZUMAB-DBLL
     Dosage: UNK (LEFT EYE)
     Route: 047
     Dates: start: 20210119
  2. BEOVU [Suspect]
     Active Substance: BROLUCIZUMAB-DBLL
     Indication: NEOVASCULAR AGE-RELATED MACULAR DEGENERATION
     Dosage: UNK
     Route: 047
  3. EYLEA [Suspect]
     Active Substance: AFLIBERCEPT
     Indication: PRODUCT USED FOR UNKNOWN INDICATION
     Dosage: UNK
     Route: 065
  4. BEOVU [Suspect]
     Active Substance: BROLUCIZUMAB-DBLL
     Dosage: UNK (LEFT EYE)
     Route: 047

REACTIONS (12)
  - Photophobia [Recovering/Resolving]
  - Headache [Recovering/Resolving]
  - Ocular discomfort [Unknown]
  - Metamorphopsia [Recovering/Resolving]
  - Eye contusion [Recovering/Resolving]
  - Visual impairment [Unknown]
  - Vitreous floaters [Unknown]
  - Vision blurred [Recovering/Resolving]
  - Eye pain [Unknown]
  - Eye haemorrhage [Recovering/Resolving]
  - Eye irritation [Recovering/Resolving]
  - Feeling abnormal [Recovering/Resolving]
